FAERS Safety Report 11118933 (Version 4)
Quarter: 2015Q3

REPORT INFORMATION
  Report Type: Spontaneous
  Country: ES (occurrence: ES)
  Receive Date: 20150518
  Receipt Date: 20150701
  Transmission Date: 20151125
  Serious: Yes (Life-Threatening, Other)
  Sender: FDA-Public Use
  Company Number: ES-PFIZER INC-2015137727

PATIENT
  Age: 10 Year
  Sex: Male

DRUGS (5)
  1. BENEFIX [Suspect]
     Active Substance: COAGULATION FACTOR IX RECOMBINANT HUMAN\ISOPROPYL ALCOHOL
     Indication: FACTOR IX DEFICIENCY
     Dosage: 500 IU, 2X/WEEK
     Dates: start: 20081118
  2. BENEFIX [Suspect]
     Active Substance: COAGULATION FACTOR IX RECOMBINANT HUMAN\ISOPROPYL ALCOHOL
     Dosage: 3000 IU, UNK
  3. BENEFIX [Suspect]
     Active Substance: COAGULATION FACTOR IX RECOMBINANT HUMAN\ISOPROPYL ALCOHOL
     Dosage: 1500 IU, 2X/WEEK
     Dates: start: 201503
  4. BENEFIX [Suspect]
     Active Substance: COAGULATION FACTOR IX RECOMBINANT HUMAN\ISOPROPYL ALCOHOL
     Dosage: UNK
  5. BENEFIX [Suspect]
     Active Substance: COAGULATION FACTOR IX RECOMBINANT HUMAN\ISOPROPYL ALCOHOL
     Dosage: 2000 UNK, UNK
     Dates: start: 20150323

REACTIONS (8)
  - Anaphylactic reaction [Recovered/Resolved]
  - Sports injury [Unknown]
  - Limb crushing injury [Recovered/Resolved]
  - Drug ineffective [Unknown]
  - Factor IX inhibition [Unknown]
  - Muscle haemorrhage [Unknown]
  - Product quality issue [Unknown]
  - Muscle injury [Unknown]

NARRATIVE: CASE EVENT DATE: 201308
